FAERS Safety Report 13767389 (Version 1)
Quarter: 2017Q3

REPORT INFORMATION
  Report Type: Spontaneous
  Country: US (occurrence: US)
  Receive Date: 20170719
  Receipt Date: 20170719
  Transmission Date: 20171127
  Serious: No
  Sender: FDA-Public Use
  Company Number: None

PATIENT
  Age: 23 Year
  Sex: Female
  Weight: 54.48 kg

DRUGS (1)
  1. MUPIROCIN 2% OINTMENT [Suspect]
     Active Substance: MUPIROCIN
     Indication: STAPHYLOCOCCAL INFECTION
     Dosage: 2% OINT BID-TID TO LEGS
     Route: 061
     Dates: start: 20170630, end: 20170630

REACTIONS (1)
  - Rash [None]

NARRATIVE: CASE EVENT DATE: 20170630
